FAERS Safety Report 5063080-9 (Version None)
Quarter: 2006Q3

REPORT INFORMATION
  Report Type: 
  Country: None (occurrence: None)
  Receive Date: 20060727
  Receipt Date: 20060717
  Transmission Date: 20061208
  Serious: Yes (Disabling, Other)
  Sender: FDA-Public Use
  Company Number: US-BRISTOL-MYERS SQUIBB COMPANY-13447396

PATIENT
  Age: 60 Year
  Sex: Male
  Weight: 83 kg

DRUGS (2)
  1. CYTOXAN [Suspect]
     Indication: NON-HODGKIN'S LYMPHOMA
     Route: 042
     Dates: start: 20060421, end: 20060421
  2. INSULIN [Concomitant]
     Indication: DIABETES MELLITUS

REACTIONS (5)
  - EXTRAVASATION [None]
  - INFUSION SITE NERVE DAMAGE [None]
  - INJECTION SITE ANAESTHESIA [None]
  - INJECTION SITE ERYTHEMA [None]
  - INJECTION SITE SWELLING [None]
